FAERS Safety Report 19041536 (Version 1)
Quarter: 2021Q1

REPORT INFORMATION
  Report Type: Report from Study
  Country: US (occurrence: US)
  Receive Date: 20210323
  Receipt Date: 20210323
  Transmission Date: 20210420
  Serious: Yes (Other)
  Sender: FDA-Public Use
  Company Number: US-ASTRAZENECA-2021A022628

PATIENT
  Age: 66 Year
  Sex: Male

DRUGS (1)
  1. LYNPARZA [Suspect]
     Active Substance: OLAPARIB
     Indication: PROSTATE CANCER
     Route: 048
     Dates: start: 20191023, end: 20210120

REACTIONS (3)
  - Malignant neoplasm progression [Unknown]
  - Drug ineffective [Unknown]
  - Prostatic specific antigen increased [Unknown]
